FAERS Safety Report 15806153 (Version 1)
Quarter: 2019Q1

REPORT INFORMATION
  Report Type: Spontaneous
  Country: BR (occurrence: BR)
  Receive Date: 20190110
  Receipt Date: 20190110
  Transmission Date: 20190417
  Serious: Yes (Hospitalization, Other)
  Sender: FDA-Public Use
  Company Number: BR-ASTRAZENECA-2019SE02812

PATIENT
  Sex: Female

DRUGS (2)
  1. PULMICORT TURBUHALER [Suspect]
     Active Substance: BUDESONIDE
     Dosage: 0.5 MG/ML, DAILY, 1 FLASKS DUE TO FINANCIAL REASON
     Route: 055
  2. PULMICORT TURBUHALER [Suspect]
     Active Substance: BUDESONIDE
     Dosage: 0.5 MG/ML, DAILY, 2 FLASKS
     Route: 055

REACTIONS (3)
  - Benign neoplasm [Unknown]
  - Rhinitis [Unknown]
  - Asthma [Unknown]
